FAERS Safety Report 9568378 (Version 1)
Quarter: 2013Q3

REPORT INFORMATION
  Report Type: Spontaneous
  Country: US (occurrence: US)
  Receive Date: 20130930
  Receipt Date: 20130930
  Transmission Date: 20140515
  Serious: No
  Sender: FDA-Public Use
  Company Number: US-AMGEN-USASP2013050166

PATIENT
  Age: 56 Year
  Sex: Female
  Weight: 84.81 kg

DRUGS (6)
  1. ENBREL [Suspect]
     Indication: RHEUMATOID ARTHRITIS
     Dosage: 50 MG, QWK
     Route: 058
     Dates: start: 2011
  2. JANUVIA [Concomitant]
     Dosage: UNK
  3. LORTAB                             /00607101/ [Concomitant]
     Dosage: UNK
  4. METFORMIN [Concomitant]
     Dosage: UNK
  5. PAXIL                              /00500401/ [Concomitant]
     Dosage: UNK
  6. VIVELLE                            /00045401/ [Concomitant]
     Dosage: UNK

REACTIONS (2)
  - Hypersensitivity [Recovered/Resolved]
  - Varicella [Recovered/Resolved]
